FAERS Safety Report 8100416-6 (Version None)
Quarter: 2012Q1

REPORT INFORMATION
  Report Type: 
  Country: None (occurrence: None)
  Receive Date: 20120129
  Receipt Date: 20111117
  Transmission Date: 20120608
  Serious: No
  Sender: FDA-Public Use
  Company Number: US-ABBOTT-11P-163-0874990-00

PATIENT
  Sex: Male
  Weight: 89.892 kg

DRUGS (4)
  1. HUMIRA [Suspect]
     Indication: CROHN'S DISEASE
     Route: 058
     Dates: start: 20100601
  2. CITRACAL + D [Concomitant]
     Indication: MINERAL SUPPLEMENTATION
  3. MULTI-VITAMIN [Concomitant]
     Indication: VITAMIN SUPPLEMENTATION
  4. PENTASA [Concomitant]
     Indication: CROHN'S DISEASE
     Dosage: EIGHT 500MG (4000 MG) TABLETS DAILY

REACTIONS (4)
  - UVEITIS [None]
  - CONJUNCTIVITIS INFECTIVE [None]
  - DEVICE MALFUNCTION [None]
  - INCORRECT DOSE ADMINISTERED [None]
